FAERS Safety Report 5857157-5 (Version None)
Quarter: 2008Q3

REPORT INFORMATION
  Report Type: 
  Country: None (occurrence: None)
  Receive Date: 20080825
  Receipt Date: 20080818
  Transmission Date: 20090109
  Serious: Yes (Hospitalization, Other)
  Sender: FDA-Public Use
  Company Number: PHEH2008US06135

PATIENT
  Sex: Female
  Weight: 63.492 kg

DRUGS (8)
  1. RECLAST [Suspect]
     Indication: OSTEOPOROSIS
     Dosage: 5 MG, ONCE/SINGLE
     Dates: start: 20080708
  2. PREDNISONE TAB [Concomitant]
     Indication: ASTHMA
     Dosage: 5 MG DAILY
  3. SYNTHROID [Concomitant]
     Indication: HYPOTHYROIDISM
     Dosage: 50 MCG DAILY
     Route: 048
  4. ALBUTEROL [Concomitant]
     Indication: ASTHMA
     Dosage: 2 PUFFS Q 4 HRS
  5. ATROVENT [Concomitant]
     Indication: ASTHMA
     Dosage: NEBULIZER QID PRN
  6. VITAMIN TAB [Concomitant]
  7. FLONASE [Concomitant]
     Indication: RHINITIS
     Dosage: 1 SPRAY DAILY
  8. CLARITIN [Concomitant]
     Indication: ASTHMA
     Dosage: ONCE DAILY
     Route: 048

REACTIONS (13)
  - ASTHENIA [None]
  - CHEST DISCOMFORT [None]
  - CHILLS [None]
  - DIZZINESS [None]
  - DYSPNOEA [None]
  - FLUSHING [None]
  - INFLUENZA LIKE ILLNESS [None]
  - LUNG DISORDER [None]
  - MYALGIA [None]
  - PARAESTHESIA [None]
  - POOR QUALITY SLEEP [None]
  - PYREXIA [None]
  - TROPONIN INCREASED [None]
